FAERS Safety Report 17235801 (Version 1)
Quarter: 2020Q1

REPORT INFORMATION
  Report Type: Spontaneous
  Country: US (occurrence: US)
  Receive Date: 20200106
  Receipt Date: 20200106
  Transmission Date: 20200409
  Serious: Yes (Other)
  Sender: FDA-Public Use
  Company Number: US-TAKEDA-2020TUS000074

PATIENT
  Age: 25 Year
  Sex: Male
  Weight: 89.34 kg

DRUGS (13)
  1. ENTYVIO [Suspect]
     Active Substance: VEDOLIZUMAB
     Dosage: 300 MILLIGRAM, Q4WEEKS
     Route: 042
     Dates: start: 201911
  2. VENLAFAXINE [Concomitant]
     Active Substance: VENLAFAXINE HYDROCHLORIDE
     Indication: DEPRESSION
     Dosage: 37.5 MILLIGRAM, BID
     Dates: start: 201911
  3. ENTYVIO [Suspect]
     Active Substance: VEDOLIZUMAB
     Indication: CROHN^S DISEASE
     Dosage: 300 MILLIGRAM
     Route: 042
     Dates: start: 201504
  4. ENTYVIO [Suspect]
     Active Substance: VEDOLIZUMAB
     Dosage: 300 MILLIGRAM, Q4WEEKS
     Route: 042
     Dates: start: 201801
  5. WELLBUTRIN [Concomitant]
     Active Substance: BUPROPION HYDROCHLORIDE
     Indication: DEPRESSION
     Dosage: 100 MILLIGRAM, BID
     Dates: start: 201903
  6. ENTYVIO [Suspect]
     Active Substance: VEDOLIZUMAB
     Dosage: 300 MILLIGRAM, Q4WEEKS
     Route: 042
     Dates: start: 20191221
  7. VENLAFAXINE [Concomitant]
     Active Substance: VENLAFAXINE HYDROCHLORIDE
     Indication: ANXIETY
  8. SULFAMETHOXAZOLE [Concomitant]
     Active Substance: SULFAMETHOXAZOLE
     Indication: EYE INFECTION TOXOPLASMAL
     Dosage: UNK, BID
     Dates: start: 201510
  9. FAMOTIDINE. [Concomitant]
     Active Substance: FAMOTIDINE
     Indication: CHOLECYSTECTOMY
  10. FAMOTIDINE. [Concomitant]
     Active Substance: FAMOTIDINE
     Indication: INTESTINAL RESECTION
  11. PREDNISONE. [Concomitant]
     Active Substance: PREDNISONE
     Dosage: UNK
     Dates: start: 201510
  12. PREDNISONE. [Concomitant]
     Active Substance: PREDNISONE
     Dosage: UNK
     Route: 050
     Dates: start: 201502
  13. FAMOTIDINE. [Concomitant]
     Active Substance: FAMOTIDINE
     Indication: DYSPEPSIA
     Dosage: UNK
     Dates: start: 201911

REACTIONS (14)
  - Appendicectomy [Unknown]
  - Gallbladder disorder [Unknown]
  - Product dose omission [Unknown]
  - Depression [Unknown]
  - Intestinal resection [Unknown]
  - Gastrointestinal stoma output abnormal [Unknown]
  - Dyspepsia [Unknown]
  - Therapeutic response decreased [Unknown]
  - Off label use [Unknown]
  - Intestinal stenosis [Unknown]
  - Abscess intestinal [Unknown]
  - Soft tissue excision [Unknown]
  - Anxiety [Unknown]
  - Dehydration [Unknown]

NARRATIVE: CASE EVENT DATE: 201511
